FAERS Safety Report 8406654 (Version 2)
Quarter: 2013Q2

REPORT INFORMATION
  Report Type: Spontaneous
  Country: US (occurrence: None)
  Receive Date: 20111227
  Receipt Date: 20120426
  Transmission Date: 20140414
  Serious: Yes (Other)
  Sender: FDA-Public Use
  Company Number: PHEH2011US06329

PATIENT
  Age: 53 Year
  Sex: Female
  Weight: 107.6 kg

DRUGS (5)
  1. GILENYA (FTY) CAPSULE [Suspect]
     Indication: MULTIPLE SCLEROSIS
     Dates: start: 20110509
  2. CYCLOBENZAPRINE [Concomitant]
  3. FLURBIPROFEN [Concomitant]
  4. GABAPENTIN [Concomitant]
  5. VICOPROFEN (HYDROCODONE, HYDROCODONE BITARTRATE, IBUPROFEN) [Concomitant]

REACTIONS (3)
  - PNEUMONIA [None]
  - MULTIPLE SCLEROSIS RELAPSE [None]
  - WHITE BLOOD CELL COUNT DECREASED [None]
